FAERS Safety Report 4851179-9 (Version None)
Quarter: 2005Q4

REPORT INFORMATION
  Report Type: 
  Country: None (occurrence: None)
  Receive Date: 20051212
  Receipt Date: 20051201
  Transmission Date: 20060501
  Serious: Yes (Other)
  Sender: FDA-Public Use
  Company Number: US-JNJFOC-20051200936

PATIENT
  Sex: Male

DRUGS (11)
  1. INFLIXIMAB [Suspect]
     Indication: RHEUMATOID ARTHRITIS
     Route: 042
  2. METHOTREXATE [Concomitant]
  3. ASPIRIN [Concomitant]
  4. COREG [Concomitant]
  5. CELEBREX [Concomitant]
  6. PENTOXIFYLLINE [Concomitant]
  7. FOLIC ACID [Concomitant]
  8. ALTACE [Concomitant]
  9. LIPITOR [Concomitant]
  10. PREDNISONE [Concomitant]
  11. GLUCOSAMINE [Concomitant]
     Dosage: 1000 MG - 2000 MG DAILY

REACTIONS (1)
  - SKIN CANCER [None]
